FAERS Safety Report 21775331 (Version 1)
Quarter: 2022Q4

REPORT INFORMATION
  Report Type: Spontaneous
  Country: IT (occurrence: None)
  Receive Date: 20221225
  Receipt Date: 20221225
  Transmission Date: 20230112
  Serious: Yes (Life-Threatening, Other)
  Sender: FDA-Public Use
  Company Number: None

PATIENT
  Age: 71 Year
  Sex: Female

DRUGS (5)
  1. ROCURONIUM [Interacting]
     Active Substance: ROCURONIUM BROMIDE
     Indication: Induction of anaesthesia
     Route: 042
     Dates: start: 20221130
  2. PROPOFOL [Interacting]
     Active Substance: PROPOFOL
     Indication: Induction of anaesthesia
     Route: 042
     Dates: start: 20221130, end: 20221130
  3. FENTANYL [Interacting]
     Active Substance: FENTANYL
     Indication: Induction of anaesthesia
     Route: 042
     Dates: start: 20221130
  4. CEFAZOLIN [Interacting]
     Active Substance: CEFAZOLIN
     Indication: Antibiotic prophylaxis
     Route: 042
     Dates: start: 20221130
  5. INFUPLAS [Concomitant]
     Indication: Haemodynamic instability
     Route: 042
     Dates: start: 20221130

REACTIONS (4)
  - Haemodynamic instability [Recovered/Resolved]
  - Anaphylactic shock [Recovered/Resolved]
  - Drug interaction [Recovered/Resolved]
  - Erythema [Recovered/Resolved]

NARRATIVE: CASE EVENT DATE: 20221130
